FAERS Safety Report 15289635 (Version 1)
Quarter: 2018Q4

REPORT INFORMATION
  Report Type: Spontaneous
  Country: FR (occurrence: FR)
  Receive Date: 20180817
  Receipt Date: 20180817
  Transmission Date: 20190204
  Serious: Yes (Other)
  Sender: FDA-Public Use
  Company Number: FR-TEVA-2018-FR-941831

PATIENT
  Age: 66 Year
  Sex: Male

DRUGS (8)
  1. CACIT VITAMINE D3 [Concomitant]
     Active Substance: CALCIUM CARBONATE\CHOLECALCIFEROL
     Route: 065
  2. ALLOPURINOL. [Suspect]
     Active Substance: ALLOPURINOL
     Indication: GOUT
     Dosage: 100 MILLIGRAM DAILY;
     Route: 048
     Dates: start: 20180420, end: 20180529
  3. COOLMETEC 40 MG/12,5 MG, COMPRIM? PELLICUL? [Concomitant]
     Active Substance: HYDROCHLOROTHIAZIDE\OLMESARTAN MEDOXOMIL
     Route: 065
  4. AMLOR 10 MG, G?LULE [Concomitant]
     Active Substance: AMLODIPINE BESYLATE
     Route: 065
  5. CRESTOR [Concomitant]
     Active Substance: ROSUVASTATIN CALCIUM
     Route: 065
  6. ENTOCORT 3 MG, MICROGRANULES GASTROR?SISTANTS EN G?LULE [Concomitant]
     Route: 065
  7. LASILIX 40 MG, COMPRIM? S?CABLE [Concomitant]
     Active Substance: FUROSEMIDE
     Route: 065
  8. COLCHIMAX [COLCHICINE;DICYCLOVERINE HYDROCHLORIDE]? [Suspect]
     Active Substance: COLCHICINE\DICYCLOMINE HYDROCHLORIDE
     Indication: GOUT
     Dosage: 2 DOSAGE FORMS DAILY;
     Route: 048
     Dates: start: 20180419, end: 20180511

REACTIONS (3)
  - Pyrexia [Recovered/Resolved]
  - Chills [Recovered/Resolved]
  - Rash generalised [Recovered/Resolved]

NARRATIVE: CASE EVENT DATE: 20180529
